FAERS Safety Report 8438886 (Version 2)
Quarter: 2012Q4

REPORT INFORMATION
  Report Type: 
  Country: GB (occurrence: GB)
  Receive Date: 20120302
  Receipt Date: 20120914
  Transmission Date: 20130627
  Serious: Yes (Other)
  Sender: FDA-Public Use
  Company Number: GB-MERCK-1202USA04086

PATIENT

DRUGS (5)
  1. DEXAMETHASONE [Suspect]
     Dosage: 6 mg/m2, qd
     Route: 048
  2. ASPARAGINASE [Suspect]
     Dosage: 1000 units/m2 on days 4 and 18
     Route: 030
  3. ASPARAGINASE [Suspect]
     Dosage: 20000 units/m2
     Route: 030
  4. VINCRISTINE SULFATE [Concomitant]
     Dosage: 1.50 mg/m2, qw
     Route: 042
  5. DAUNORUBICIN [Concomitant]
     Dosage: 25 mg/m2, UNK
     Route: 042

REACTIONS (3)
  - Hypertriglyceridaemia [Unknown]
  - Oedema peripheral [Unknown]
  - Hyponatraemia [Unknown]
